FAERS Safety Report 18624035 (Version 4)
Quarter: 2021Q1

REPORT INFORMATION
  Report Type: Spontaneous
  Country: NL (occurrence: FR)
  Receive Date: 20201216
  Receipt Date: 20210121
  Transmission Date: 20210419
  Serious: Yes (Death, Hospitalization, Other)
  Sender: FDA-Public Use
  Company Number: FR-FRESENIUS KABI-FK202013123

PATIENT
  Age: 65 Year
  Sex: Male
  Weight: 68 kg

DRUGS (18)
  1. PEMBROLIZUMAB. [Suspect]
     Active Substance: PEMBROLIZUMAB
     Dosage: 200 MILLIGRAM?PHARMACEUTICAL DOSE FORM (FREE TEXT): SOLUTION FOR INJECTION
     Route: 042
     Dates: start: 20201103
  2. PEMETREXED DISODIUM [Suspect]
     Active Substance: PEMETREXED DISODIUM
     Dosage: 900 MILLIGRAM
     Route: 065
     Dates: start: 20200922
  3. PEMBROLIZUMAB. [Suspect]
     Active Substance: PEMBROLIZUMAB
     Indication: NON-SMALL CELL LUNG CANCER METASTATIC
     Dosage: 200 MILLIGRAM?PHARMACEUTICAL DOSE FORM (FREE TEXT): SOLUTION FOR INJECTION
     Route: 065
     Dates: start: 20200922
  4. PEMBROLIZUMAB. [Suspect]
     Active Substance: PEMBROLIZUMAB
     Dosage: UNK?PHARMACEUTICAL DOSE FORM (FREE TEXT): SOLUTION FOR INJECTION
     Route: 065
     Dates: start: 20200408
  5. PEMBROLIZUMAB. [Suspect]
     Active Substance: PEMBROLIZUMAB
     Dosage: 200 MILLIGRAM?PHARMACEUTICAL DOSE FORM (FREE TEXT): SOLUTION FOR INJECTION
     Route: 065
     Dates: start: 20200721
  6. PEMETREXED DISODIUM [Suspect]
     Active Substance: PEMETREXED DISODIUM
     Dosage: 900 MILLIGRAM
     Route: 065
     Dates: start: 20201013
  7. FENTANYL. [Concomitant]
     Active Substance: FENTANYL
     Indication: PRODUCT USED FOR UNKNOWN INDICATION
     Dosage: 37 MICROGRAM, QH
     Route: 065
     Dates: start: 20201027, end: 20201123
  8. PEMETREXED DISODIUM [Suspect]
     Active Substance: PEMETREXED DISODIUM
     Dosage: 905 MILLIGRAM
     Route: 042
     Dates: start: 20201103
  9. PEMETREXED DISODIUM [Suspect]
     Active Substance: PEMETREXED DISODIUM
     Indication: NON-SMALL CELL LUNG CANCER METASTATIC
     Dosage: UNK
     Route: 065
     Dates: start: 20200408
  10. PEMBROLIZUMAB. [Suspect]
     Active Substance: PEMBROLIZUMAB
     Dosage: 200 MILLIGRAM?PHARMACEUTICAL DOSE FORM (FREE TEXT): SOLUTION FOR INJECTION
     Route: 065
     Dates: start: 20201013
  11. PEMETREXED DISODIUM [Suspect]
     Active Substance: PEMETREXED DISODIUM
     Dosage: 900 MILLIGRAM
     Route: 065
     Dates: start: 20200721
  12. ACETYLSALICYLATE LYSINE [Concomitant]
     Active Substance: ASPIRIN DL-LYSINE
     Indication: PRODUCT USED FOR UNKNOWN INDICATION
     Dosage: 75 MILLIGRAM
     Route: 048
  13. METFORMIN [Concomitant]
     Active Substance: METFORMIN HYDROCHLORIDE
     Indication: PRODUCT USED FOR UNKNOWN INDICATION
     Dosage: 1000 MILLIGRAM, TID, FOR YEARS
     Route: 065
     Dates: end: 20201120
  14. BISOPROLOL [Concomitant]
     Active Substance: BISOPROLOL
     Indication: PRODUCT USED FOR UNKNOWN INDICATION
     Dosage: 2.5 MILLIGRAM, QD
     Route: 065
  15. OXYCODONE HYDROCHLORIDE. [Concomitant]
     Active Substance: OXYCODONE HYDROCHLORIDE
     Indication: PRODUCT USED FOR UNKNOWN INDICATION
     Dosage: 3 MILLIGRAM, PRN
     Route: 048
     Dates: start: 20201027, end: 20201123
  16. PEMBROLIZUMAB. [Suspect]
     Active Substance: PEMBROLIZUMAB
     Dosage: 200 MILLIGRAM?PHARMACEUTICAL DOSE FORM (FREE TEXT): SOLUTION FOR INJECTION
     Route: 042
     Dates: start: 20201103
  17. CARBOPLATIN (MANUFACTURER UNKNOWN) [Suspect]
     Active Substance: CARBOPLATIN
     Indication: NON-SMALL CELL LUNG CANCER METASTATIC
     Dosage: UNK
     Route: 065
     Dates: start: 20200408
  18. ROSUVASTATIN CALCIUM. [Concomitant]
     Active Substance: ROSUVASTATIN CALCIUM
     Indication: PRODUCT USED FOR UNKNOWN INDICATION
     Dosage: 1 DOSAGE FORM, QD
     Route: 065

REACTIONS (17)
  - Acute kidney injury [Unknown]
  - Asthenia [Unknown]
  - Diarrhoea [Unknown]
  - Death [Fatal]
  - Septic shock [Fatal]
  - Malignant neoplasm progression [Unknown]
  - Hypotension [Unknown]
  - Hyperuricaemia [Unknown]
  - Febrile bone marrow aplasia [Unknown]
  - Pancytopenia [Unknown]
  - General physical health deterioration [Unknown]
  - Systemic inflammatory response syndrome [Unknown]
  - Dysphagia [Unknown]
  - Proctalgia [Unknown]
  - Diarrhoea [Unknown]
  - Dyspnoea exertional [Unknown]
  - Toxicity to various agents [Unknown]

NARRATIVE: CASE EVENT DATE: 20201029
